FAERS Safety Report 6025470-7 (Version None)
Quarter: 2008Q4

REPORT INFORMATION
  Report Type: 
  Country: None (occurrence: None)
  Receive Date: 20081231
  Receipt Date: 20081217
  Transmission Date: 20090506
  Serious: Yes (Other)
  Sender: FDA-Public Use
  Company Number: CA-PFIZER INC-2008096465

PATIENT

DRUGS (18)
  1. LYRICA [Suspect]
     Indication: PAIN
     Dosage: 150 MG, 3X/DAY
     Route: 048
     Dates: start: 20051201, end: 20080601
  2. GABAPENTIN [Suspect]
  3. CANNABIS [Concomitant]
     Dosage: UNK
     Dates: start: 20060201
  4. GABAPENTIN [Concomitant]
     Dosage: UNK
     Dates: start: 20060707, end: 20061002
  5. CESAMET [Concomitant]
     Dosage: 0.5 MG, UNK
     Dates: start: 20060515
  6. RISPERDAL [Concomitant]
     Dosage: 1 MG, UNK
     Dates: start: 20060704
  7. EFFEXOR [Concomitant]
     Dosage: 75 MG, UNK
     Dates: start: 20060909
  8. ZOPICLONE [Concomitant]
     Dosage: 7.5 MG, UNK
     Dates: start: 20061002
  9. MELOXICAM [Concomitant]
     Dosage: 15 MG, UNK
     Dates: start: 20061002
  10. TWINRIX [Concomitant]
     Dosage: UNK
     Dates: start: 20061030
  11. NOVO-PRAZIN [Concomitant]
     Dosage: 1 MG, UNK
     Dates: start: 20061121
  12. VENLAFAXINE HYDROCHLORIDE [Concomitant]
     Dosage: 150 MG, UNK
     Dates: start: 20070330
  13. COX-189 [Concomitant]
     Dosage: 100 MG, UNK
     Dates: start: 20070529
  14. BETAMETHASONE VALERATE [Concomitant]
     Dosage: 0.1 %, UNK
     Dates: start: 20070606
  15. ATIVAN [Concomitant]
     Dosage: 2 MG, UNK
     Dates: start: 20071102
  16. BECLOMETHASONE DIPROPIONATE [Concomitant]
     Dosage: 50 MG, UNK
     Dates: start: 20080405
  17. NOVAMOXIN [Concomitant]
     Dosage: 500 MG, UNK
     Dates: start: 20080529
  18. ANTI-ASTHMATICS [Concomitant]

REACTIONS (20)
  - APATHY [None]
  - ASTHENIA [None]
  - ASTHMA [None]
  - BACK PAIN [None]
  - CHEST DISCOMFORT [None]
  - CHEST PAIN [None]
  - COUGH [None]
  - DRUG INEFFECTIVE [None]
  - DYSPNOEA [None]
  - ERUCTATION [None]
  - FATIGUE [None]
  - HYPERVENTILATION [None]
  - LUNG DISORDER [None]
  - NASOPHARYNGITIS [None]
  - PAROSMIA [None]
  - PLEURITIC PAIN [None]
  - RHINORRHOEA [None]
  - WEIGHT DECREASED [None]
  - WEIGHT INCREASED [None]
  - YAWNING [None]
